FAERS Safety Report 9691317 (Version 2)
Quarter: 2013Q4

REPORT INFORMATION
  Report Type: Spontaneous
  Country: AU (occurrence: AU)
  Receive Date: 20131115
  Receipt Date: 20131115
  Transmission Date: 20140711
  Serious: Yes (Other)
  Sender: FDA-Public Use
  Company Number: AU-JHP PHARMACEUTICALS, LLC-JHP201300661

PATIENT
  Sex: Male

DRUGS (2)
  1. ADRENALIN [Suspect]
     Indication: GASTRIC ULCER HAEMORRHAGE
     Dosage: 400 ?G, SINGLE
     Route: 013
  2. ANESTHETICS [Concomitant]

REACTIONS (2)
  - Incorrect route of drug administration [Recovered/Resolved]
  - Hypertension [Recovered/Resolved]
